FAERS Safety Report 4374378-1 (Version None)
Quarter: 2004Q2

REPORT INFORMATION
  Report Type: 
  Country: None (occurrence: None)
  Receive Date: 20040608
  Receipt Date: 20040608
  Transmission Date: 20050107
  Serious: Yes (Hospitalization)
  Sender: FDA-Public Use
  Company Number: None

PATIENT
  Age: 70 Year
  Sex: Male
  Weight: 89.2 kg

DRUGS (10)
  1. CASODEX [Suspect]
     Indication: PROSTATE CANCER
     Dosage: 50 MG DAILY ORAL
     Route: 048
     Dates: start: 20040414, end: 20041113
  2. ZOLADEX [Suspect]
     Indication: PROSTATE CANCER
     Dosage: 10.8 MG Q 3 MONTHS INTRAMUSCULAR
     Route: 030
     Dates: start: 20040414, end: 20041113
  3. FOLGARD [Concomitant]
  4. IMDUR [Concomitant]
  5. LIPITOR [Concomitant]
  6. LOPRESSOR [Concomitant]
  7. NIASPAN [Concomitant]
  8. OMEPRAXOLE [Concomitant]
  9. PLAVIX [Concomitant]
  10. XANAX [Concomitant]

REACTIONS (3)
  - ANGINA UNSTABLE [None]
  - CORONARY ARTERY DISEASE [None]
  - RADICULAR PAIN [None]
